FAERS Safety Report 21577504 (Version 1)
Quarter: 2022Q4

REPORT INFORMATION
  Report Type: Spontaneous
  Country: US (occurrence: None)
  Receive Date: 20221109
  Receipt Date: 20221109
  Transmission Date: 20230113
  Serious: No
  Sender: FDA-Public Use
  Company Number: None

PATIENT
  Age: 90 Year
  Sex: Female

DRUGS (1)
  1. BEBTELOVIMAB [Suspect]
     Active Substance: BEBTELOVIMAB
     Indication: COVID-19

REACTIONS (4)
  - Dyspnoea exertional [None]
  - Oxygen saturation decreased [None]
  - Anxiety [None]
  - Refusal of treatment by patient [None]

NARRATIVE: CASE EVENT DATE: 20221108
